FAERS Safety Report 4563953-7 (Version None)
Quarter: 2005Q1

REPORT INFORMATION
  Report Type: 
  Country: None (occurrence: None)
  Receive Date: 20050128
  Receipt Date: 20050114
  Transmission Date: 20050727
  Serious: Yes (Death, Life-Threatening, Other)
  Sender: FDA-Public Use
  Company Number: 2005-01-0556

PATIENT
  Age: 84 Year
  Sex: Male
  Weight: 180 kg

DRUGS (5)
  1. ASPIRIN [Suspect]
     Dates: start: 20050106, end: 20050106
  2. HEPARIN [Suspect]
     Dosage: 4000UNIT UNKNOWN
     Route: 065
     Dates: start: 20050106, end: 20050106
  3. PLAVIX [Suspect]
  4. COUMADIN [Suspect]
  5. INTEGRILIN [Suspect]
     Indication: THERAPEUTIC PROCEDURE
     Route: 042
     Dates: start: 20050106, end: 20050107

REACTIONS (6)
  - CARDIOGENIC SHOCK [None]
  - CHEST PAIN [None]
  - CONFUSIONAL STATE [None]
  - HAEMATURIA [None]
  - RESPIRATORY ARREST [None]
  - VENTRICULAR TACHYCARDIA [None]
